FAERS Safety Report 25813351 (Version 1)
Quarter: 2025Q3

REPORT INFORMATION
  Report Type: Spontaneous
  Country: AU (occurrence: AU)
  Receive Date: 20250917
  Receipt Date: 20250917
  Transmission Date: 20251021
  Serious: Yes (Other)
  Sender: PFIZER
  Company Number: AU-PFIZER INC-202500182221

PATIENT
  Age: 16 Year
  Sex: Female

DRUGS (1)
  1. NGENLA [Suspect]
     Active Substance: SOMATROGON-GHLA
     Indication: Short stature
     Dates: start: 20240201

REACTIONS (2)
  - Renal impairment [Unknown]
  - Off label use [Unknown]

NARRATIVE: CASE EVENT DATE: 20240201
